FAERS Safety Report 18925571 (Version 2)
Quarter: 2021Q1

REPORT INFORMATION
  Report Type: Spontaneous
  Country: GB (occurrence: GB)
  Receive Date: 20210222
  Receipt Date: 20210301
  Transmission Date: 20210420
  Serious: Yes (Other)
  Sender: FDA-Public Use
  Company Number: GB-BEH-2021128552

PATIENT
  Age: 51 Year
  Sex: Male

DRUGS (6)
  1. CHLORPHENAMINE [Concomitant]
     Active Substance: CHLORPHENIRAMINE MALEATE
     Dosage: UNK
     Route: 042
     Dates: start: 20210216
  2. HYDROCORT [HYDROCORTISONE;NEOMYCIN SULFATE] [Concomitant]
     Dosage: UNK
     Route: 042
     Dates: start: 20210216
  3. OXYGEN. [Concomitant]
     Active Substance: OXYGEN
     Dosage: UNK
     Dates: start: 20210216
  4. BERINERT [Suspect]
     Active Substance: HUMAN C1-ESTERASE INHIBITOR
     Indication: ANGIOEDEMA
     Dosage: 2500 INTERNATIONAL UNIT/ 20U PER KG, TOT
     Route: 042
     Dates: start: 20210216, end: 20210216
  5. ADRENALINE [EPINEPHRINE] [Concomitant]
     Active Substance: EPINEPHRINE
     Dosage: 10 MICROGRAM
     Dates: start: 20210216
  6. BERINERT [Suspect]
     Active Substance: HUMAN C1-ESTERASE INHIBITOR
     Indication: ANGIOEDEMA
     Dosage: 2500 INTERNATIONAL UNIT/ 20U PER KG, TOT
     Route: 042
     Dates: start: 20210216, end: 20210216

REACTIONS (2)
  - Drug ineffective [Recovered/Resolved]
  - Munchausen^s syndrome [Recovered/Resolved]

NARRATIVE: CASE EVENT DATE: 20210216
